FAERS Safety Report 9482064 (Version 3)
Quarter: 2014Q1

REPORT INFORMATION
  Report Type: Spontaneous
  Country: GB (occurrence: GB)
  Receive Date: 20130828
  Receipt Date: 20140208
  Transmission Date: 20141002
  Serious: Yes (Hospitalization, Other)
  Sender: FDA-Public Use
  Company Number: GB-MYLANLABS-2013S1018280

PATIENT
  Age: 51 Year
  Sex: Male
  Weight: 57 kg

DRUGS (8)
  1. LANSOPRAZOLE [Suspect]
     Indication: PRODUCT USED FOR UNKNOWN INDICATION
     Route: 048
     Dates: end: 20130612
  2. GLIVEC [Suspect]
     Indication: CHRONIC MYELOID LEUKAEMIA
     Route: 048
     Dates: start: 20130606, end: 20130613
  3. SPRYCEL /05677301/ [Suspect]
     Indication: CHRONIC MYELOID LEUKAEMIA
     Route: 048
     Dates: start: 20130418, end: 20130420
  4. ACIDEX /06334301/ [Concomitant]
     Indication: PRODUCT USED FOR UNKNOWN INDICATION
     Route: 048
     Dates: start: 20130611
  5. AMLODIPINE [Concomitant]
     Indication: HYPERTENSION
     Route: 048
     Dates: start: 20130611
  6. CITALOPRAM [Concomitant]
     Indication: DEPRESSION
     Route: 048
  7. RANITIDINE [Concomitant]
     Indication: PRODUCT USED FOR UNKNOWN INDICATION
     Route: 048
     Dates: start: 20130611
  8. METOCLOPRAMIDE [Concomitant]
     Indication: PRODUCT USED FOR UNKNOWN INDICATION

REACTIONS (6)
  - Glomerulonephritis [Recovered/Resolved with Sequelae]
  - Renal impairment [Recovered/Resolved with Sequelae]
  - Renal vasculitis [Recovered/Resolved with Sequelae]
  - Chest pain [Unknown]
  - Headache [Unknown]
  - Rash [Unknown]
